FAERS Safety Report 6691083-7 (Version None)
Quarter: 2010Q2

REPORT INFORMATION
  Report Type: 
  Country: None (occurrence: None)
  Receive Date: 20100422
  Receipt Date: 20100413
  Transmission Date: 20101027
  Serious: Yes (Death)
  Sender: FDA-Public Use
  Company Number: US-BIOGENIDEC-2010BI012628

PATIENT
  Age: 35 Year
  Sex: Female

DRUGS (2)
  1. TYSABRI [Suspect]
     Indication: MULTIPLE SCLEROSIS
     Route: 030
     Dates: start: 20071203, end: 20081017
  2. TYSABRI [Suspect]
     Route: 030
     Dates: start: 20090206, end: 20091218

REACTIONS (2)
  - DEATH [None]
  - URINARY TRACT DISORDER [None]
